FAERS Safety Report 19199189 (Version 1)
Quarter: 2021Q2

REPORT INFORMATION
  Report Type: Spontaneous
  Country: DE (occurrence: DE)
  Receive Date: 20210430
  Receipt Date: 20210430
  Transmission Date: 20210717
  Serious: Yes (Other)
  Sender: FDA-Public Use
  Company Number: DE-TEVA-2021-DE-1905236

PATIENT
  Age: 72 Year
  Sex: Male

DRUGS (3)
  1. EZETIMIB?RATIOPHARM 10 MG TABLETTEN [Suspect]
     Active Substance: EZETIMIBE
     Indication: BLOOD CHOLESTEROL INCREASED
  2. EZETIMIB?RATIOPHARM 10 MG TABLETTEN [Suspect]
     Active Substance: EZETIMIBE
     Indication: STENT PLACEMENT
     Dosage: 10 MILLIGRAM DAILY;
     Route: 048
     Dates: start: 201902, end: 20210418
  3. CANDECOR [Concomitant]
     Active Substance: CANDESARTAN CILEXETIL
     Dosage: USAGE HALVED

REACTIONS (9)
  - Asthenia [Recovering/Resolving]
  - Suicidal ideation [Recovering/Resolving]
  - Muscle fatigue [Recovering/Resolving]
  - Muscular weakness [Recovering/Resolving]
  - Myalgia [Recovering/Resolving]
  - Musculoskeletal discomfort [Recovering/Resolving]
  - Fatigue [Recovering/Resolving]
  - Drug intolerance [Unknown]
  - Pain [Recovered/Resolved]

NARRATIVE: CASE EVENT DATE: 2019
